FAERS Safety Report 4336963-2 (Version None)
Quarter: 2004Q1

REPORT INFORMATION
  Report Type: 
  Country: None (occurrence: None)
  Receive Date: 20040329
  Receipt Date: 20040205
  Transmission Date: 20041129
  Serious: No
  Sender: FDA-Public Use
  Company Number: USA040258661

PATIENT
  Age: 27 Year
  Sex: Male
  Weight: 80 kg

DRUGS (3)
  1. STRATTERA [Suspect]
     Indication: ATTENTION DEFICIT/HYPERACTIVITY DISORDER
     Dosage: 40 MG DAY
     Dates: start: 20040127, end: 20040211
  2. STRATTERA [Suspect]
     Indication: DEPRESSION
     Dosage: 40 MG DAY
     Dates: start: 20040127, end: 20040211
  3. WELLBUTRIN [Concomitant]

REACTIONS (3)
  - ERECTILE DYSFUNCTION [None]
  - PENILE SIZE REDUCED [None]
  - TESTICULAR ATROPHY [None]
